FAERS Safety Report 11700081 (Version 1)
Quarter: 2015Q4

REPORT INFORMATION
  Report Type: Spontaneous
  Country: US (occurrence: None)
  Receive Date: 20151104
  Receipt Date: 20151104
  Transmission Date: 20160304
  Serious: No
  Sender: FDA-Public Use
  Company Number: None

PATIENT
  Age: 71 Year
  Sex: Female
  Weight: 68.04 kg

DRUGS (8)
  1. ZOLPHIN [Concomitant]
  2. GABA VALERIAN [Concomitant]
  3. DICLOFENAC ALCON LABORATORIES INC [Suspect]
     Active Substance: DICLOFENAC
     Indication: CATARACT OPERATION
     Route: 047
     Dates: start: 20150220, end: 201504
  4. CALCIUM [Concomitant]
     Active Substance: CALCIUM
  5. LISINOPROL [Concomitant]
     Active Substance: LISINOPRIL
  6. VITAMIN C [Concomitant]
     Active Substance: ASCORBIC ACID
  7. FISH OIL [Concomitant]
     Active Substance: FISH OIL
  8. TIYPTOPHAN [Concomitant]

REACTIONS (1)
  - Corneal disorder [None]

NARRATIVE: CASE EVENT DATE: 201505
